FAERS Safety Report 19134812 (Version 1)
Quarter: 2021Q2

REPORT INFORMATION
  Report Type: Spontaneous
  Country: JP (occurrence: JP)
  Receive Date: 20210414
  Receipt Date: 20210414
  Transmission Date: 20210717
  Serious: Yes (Other)
  Sender: FDA-Public Use
  Company Number: JP-ACACIA PHARMA LIMITED-2109323

PATIENT

DRUGS (3)
  1. ISOTONIC SODIUM CHLORIDE SOLUTION [Concomitant]
     Active Substance: SODIUM CHLORIDE
     Route: 042
  2. BYFAVO [Suspect]
     Active Substance: REMIMAZOLAM BESYLATE
     Indication: PRODUCT USED FOR UNKNOWN INDICATION
     Route: 042
  3. PHYSIO [DEXTROSE\ELECTROLYTES NOS] [Suspect]
     Active Substance: DEXTROSE\ELECTROLYTES NOS
     Route: 042

REACTIONS (4)
  - Product deposit [Unknown]
  - Drug interaction [Unknown]
  - Vascular access site occlusion [Unknown]
  - Anaesthetic complication [Unknown]
